FAERS Safety Report 9490496 (Version 1)
Quarter: 2013Q3

REPORT INFORMATION
  Report Type: Spontaneous
  Country: US (occurrence: None)
  Receive Date: 20130827
  Receipt Date: 20130827
  Transmission Date: 20140515
  Serious: No
  Sender: FDA-Public Use
  Company Number: None

PATIENT
  Age: 65 Year
  Sex: Female

DRUGS (9)
  1. DOXYCYCLINE HYCLATE [Suspect]
     Indication: LYME DISEASE
     Dosage: 100 MG ONE AM ONE PM BY MOUTH
     Route: 048
     Dates: start: 20130521, end: 20130609
  2. PROZAC [Concomitant]
  3. GLUCOSAMINE [Concomitant]
  4. VITAMIN E [Concomitant]
  5. B-72 [Concomitant]
  6. B-6 [Concomitant]
  7. CITRICAL CALCIUM [Concomitant]
  8. OMEGA 3 [Concomitant]
  9. FLUOXETINE [Concomitant]

REACTIONS (7)
  - Dysphonia [None]
  - Dizziness [None]
  - Headache [None]
  - Fatigue [None]
  - Pyrexia [None]
  - Oesophageal candidiasis [None]
  - Paraesthesia [None]
